FAERS Safety Report 13769151 (Version 1)
Quarter: 2017Q3

REPORT INFORMATION
  Report Type: Spontaneous
  Country: US (occurrence: US)
  Receive Date: 20170719
  Receipt Date: 20170719
  Transmission Date: 20171127
  Serious: No
  Sender: FDA-Public Use
  Company Number: US-BAUSCH-BL-2016-024145

PATIENT
  Age: 16 Year
  Sex: Female
  Weight: 59.02 kg

DRUGS (5)
  1. GILDESS [Concomitant]
     Active Substance: ETHINYL ESTRADIOL\NORETHINDRONE ACETATE
     Indication: IRRITABLE BOWEL SYNDROME
  2. XIFAXAN [Suspect]
     Active Substance: RIFAXIMIN
     Indication: IRRITABLE BOWEL SYNDROME
     Route: 048
     Dates: start: 20160928, end: 2016
  3. TRAZODONE [Concomitant]
     Active Substance: TRAZODONE HYDROCHLORIDE
     Indication: IRRITABLE BOWEL SYNDROME
  4. TOPAMAX [Concomitant]
     Active Substance: TOPIRAMATE
     Indication: IRRITABLE BOWEL SYNDROME
  5. GABAPENTIN. [Concomitant]
     Active Substance: GABAPENTIN
     Indication: IRRITABLE BOWEL SYNDROME

REACTIONS (5)
  - Wrong technique in product usage process [Unknown]
  - Product use complaint [Unknown]
  - Product size issue [Unknown]
  - Product taste abnormal [Unknown]
  - Urticaria [Unknown]

NARRATIVE: CASE EVENT DATE: 2016
